FAERS Safety Report 10199733 (Version 1)
Quarter: 2014Q2

REPORT INFORMATION
  Report Type: Spontaneous
  Country: US (occurrence: US)
  Receive Date: 20140527
  Receipt Date: 20140527
  Transmission Date: 20141212
  Serious: No
  Sender: FDA-Public Use
  Company Number: US-ASTRAZENECA-2014SE33572

PATIENT
  Age: 55 Year
  Sex: Female
  Weight: 48.1 kg

DRUGS (1)
  1. NEXIUM [Suspect]
     Indication: GASTROOESOPHAGEAL REFLUX DISEASE
     Route: 048

REACTIONS (4)
  - Dehydration [Unknown]
  - Diarrhoea [Unknown]
  - Hypersensitivity [Unknown]
  - Drug ineffective [Unknown]
